FAERS Safety Report 5622970-6 (Version None)
Quarter: 2008Q1

REPORT INFORMATION
  Report Type: 
  Country: None (occurrence: None)
  Receive Date: 20080212
  Receipt Date: 20080204
  Transmission Date: 20080703
  Serious: Yes (Other)
  Sender: FDA-Public Use
  Company Number: US-AVENTIS-200810761US

PATIENT
  Sex: Male

DRUGS (1)
  1. APIDRA [Suspect]
     Dosage: DOSE: 28 UNITS VIA PUMP
     Dates: start: 20070101

REACTIONS (4)
  - DIABETIC KETOACIDOSIS [None]
  - DRUG INEFFECTIVE [None]
  - HYPERGLYCAEMIA [None]
  - MALAISE [None]
